FAERS Safety Report 25401354 (Version 1)
Quarter: 2025Q2

REPORT INFORMATION
  Report Type: Spontaneous
  Country: GB (occurrence: GB)
  Receive Date: 20250605
  Receipt Date: 20250605
  Transmission Date: 20250716
  Serious: Yes (Other)
  Sender: NOVARTIS
  Company Number: GB-002147023-NVSC2025GB042424

PATIENT
  Age: 29 Year
  Sex: Male

DRUGS (1)
  1. TRILEPTAL [Suspect]
     Active Substance: OXCARBAZEPINE
     Indication: Brain injury
     Route: 065

REACTIONS (3)
  - Illness [Unknown]
  - Off label use [Unknown]
  - Product availability issue [Unknown]
